FAERS Safety Report 19902254 (Version 1)
Quarter: 2021Q3

REPORT INFORMATION
  Report Type: Report from Study
  Country: GB (occurrence: GB)
  Receive Date: 20210930
  Receipt Date: 20210930
  Transmission Date: 20211014
  Serious: Yes (Hospitalization)
  Sender: FDA-Public Use
  Company Number: GB-MYLANLABS-2019M1098378

PATIENT
  Age: 73 Year
  Sex: Female

DRUGS (68)
  1. HERCEPTIN [Suspect]
     Active Substance: TRASTUZUMAB
     Dosage: 288 MG, TIW (MAINTENANCE DOSEMOST RECENT DOSE 16/AUG/2013)
     Route: 042
     Dates: start: 20121227
  2. ZOMORPH [Concomitant]
     Active Substance: MORPHINE SULFATE
     Dosage: 30 MILLIGRAM, QD
     Route: 065
     Dates: start: 20130118, end: 20130122
  3. SANDO K                            /00209301/ [Concomitant]
     Active Substance: POTASSIUM BICARBONATE\POTASSIUM CHLORIDE
     Indication: PRODUCT USED FOR UNKNOWN INDICATION
     Dosage: 2 DOSAGE FORM, QD
     Route: 065
     Dates: start: 20130911, end: 20130916
  4. LOPERAMIDE [Concomitant]
     Active Substance: LOPERAMIDE
     Indication: PRODUCT USED FOR UNKNOWN INDICATION
     Dosage: UNK
     Route: 065
     Dates: start: 20130910
  5. LOPERAMIDE [Concomitant]
     Active Substance: LOPERAMIDE
     Dosage: UNK
     Route: 065
     Dates: start: 20121214
  6. AZOPT [Concomitant]
     Active Substance: BRINZOLAMIDE
     Dosage: 10 MG/ML. TOTAL DAILY DOSE: 1 GTT RIGHT EYE (1 DROP TWICE DAILY)
     Route: 065
     Dates: start: 20120110
  7. METRONIDAZOLE. [Concomitant]
     Active Substance: METRONIDAZOLE
     Dosage: 1200 MILLIGRAM, QD
     Route: 065
     Dates: start: 20130508, end: 20130515
  8. FLUOXETINE [Concomitant]
     Active Substance: FLUOXETINE HYDROCHLORIDE
     Dosage: UNK
     Route: 065
     Dates: start: 20130909
  9. FLUOXETINE [Concomitant]
     Active Substance: FLUOXETINE HYDROCHLORIDE
     Dosage: 40 MILLIGRAM, QD
     Route: 065
     Dates: start: 201306, end: 20130730
  10. LAPATINIB [Suspect]
     Active Substance: LAPATINIB
     Dosage: 750 MILLIGRAM
     Route: 065
     Dates: start: 20130924
  11. HERCEPTIN [Suspect]
     Active Substance: TRASTUZUMAB
     Indication: HER2 POSITIVE BREAST CANCER
     Dosage: 8 MG/KG, UNK (LOADING DOSE (CYCLE 1 ONLY AS PER PROTOCOL))
     Route: 042
     Dates: start: 20121206
  12. AMOXICILLIN. [Concomitant]
     Active Substance: AMOXICILLIN
     Dosage: 500 MILLIGRAM, QD
     Route: 065
     Dates: start: 20130213, end: 20130219
  13. SANDO K                            /00209301/ [Concomitant]
     Active Substance: POTASSIUM BICARBONATE\POTASSIUM CHLORIDE
     Dosage: 2 DOSAGE FORM, QD
     Route: 065
     Dates: start: 20130911, end: 20130916
  14. FRUSEMIDE                          /00032601/ [Concomitant]
     Active Substance: FUROSEMIDE
     Indication: PRODUCT USED FOR UNKNOWN INDICATION
     Dosage: UNK
     Route: 065
     Dates: start: 20130716
  15. METOCLOPRAMIDE. [Concomitant]
     Active Substance: METOCLOPRAMIDE
     Indication: PRODUCT USED FOR UNKNOWN INDICATION
     Dosage: 20 MILLIGRAM
     Route: 065
     Dates: start: 20130110, end: 20130114
  16. OPTIVE [Concomitant]
     Active Substance: CARBOXYMETHYLCELLULOSE SODIUM\GLYCERIN
     Dosage: DAILY DOSE:10 ML 1 DROPS
     Route: 065
     Dates: start: 20130724
  17. LANSOPRAZOLE. [Concomitant]
     Active Substance: LANSOPRAZOLE
     Indication: PRODUCT USED FOR UNKNOWN INDICATION
     Dosage: 30 MILLIGRAM, QD
     Route: 065
     Dates: start: 20130724
  18. FLUOXETINE [Concomitant]
     Active Substance: FLUOXETINE HYDROCHLORIDE
     Indication: PRODUCT USED FOR UNKNOWN INDICATION
     Dosage: 1 DOSAGE FORM, QD
     Route: 065
     Dates: start: 20121101, end: 20121221
  19. FLUOXETINE [Concomitant]
     Active Substance: FLUOXETINE HYDROCHLORIDE
     Dosage: 1 DOSAGE FORM, QD
     Route: 065
     Dates: start: 20130402
  20. FLUOXETINE [Concomitant]
     Active Substance: FLUOXETINE HYDROCHLORIDE
     Dosage: 1 DOSAGE FORM
     Route: 065
     Dates: start: 20130909
  21. ZOMORPH [Concomitant]
     Active Substance: MORPHINE SULFATE
     Dosage: UNK
     Route: 065
     Dates: start: 20110102, end: 20130122
  22. ZOMORPH [Concomitant]
     Active Substance: MORPHINE SULFATE
     Dosage: 10 MILLIGRAM, QD (ZOMORPH M/R)
     Route: 065
     Dates: start: 20130814
  23. ZOMORPH [Concomitant]
     Active Substance: MORPHINE SULFATE
     Dosage: 30 MILLIGRAM, QD
     Route: 065
     Dates: start: 20130118, end: 20130122
  24. BENDROFLUAZIDE [Concomitant]
     Active Substance: BENDROFLUMETHIAZIDE
     Dosage: 2.5 MILLIGRAM, QD
     Route: 065
     Dates: start: 199805, end: 20130612
  25. TRIMETHOPRIM. [Concomitant]
     Active Substance: TRIMETHOPRIM
     Dosage: UNK
     Route: 065
     Dates: start: 20130913, end: 20130916
  26. PERINDOPRIL [Concomitant]
     Active Substance: PERINDOPRIL
     Indication: PRODUCT USED FOR UNKNOWN INDICATION
     Dosage: 4 MILLIGRAM, QD
     Route: 065
     Dates: start: 200806, end: 20130612
  27. DIFFLAM [Concomitant]
     Indication: PRODUCT USED FOR UNKNOWN INDICATION
     Dosage: UNK
     Route: 065
     Dates: start: 201212
  28. TRASTUZUMAB. [Suspect]
     Active Substance: TRASTUZUMAB
     Dosage: 288 MILLIGRAM, Q3W,MAINTENANCE DOSE MOST RECENT DOSE PRIOR TO SAE: 16/AUG/2013
     Route: 042
     Dates: start: 20121227
  29. PACLITAXEL. [Suspect]
     Active Substance: PACLITAXEL
     Indication: HER2 POSITIVE BREAST CANCER
     Dosage: MOST RECENT DOSE PRIOR TO SAE: 12/APR/2013
     Route: 065
     Dates: start: 20121221
  30. AMOXICILLIN. [Concomitant]
     Active Substance: AMOXICILLIN
     Indication: PRODUCT USED FOR UNKNOWN INDICATION
     Dosage: 1500 MILLIGRAM, QD
     Route: 065
     Dates: start: 20130213, end: 20130219
  31. FLUXETIN [Concomitant]
     Dosage: UNK
     Route: 065
     Dates: start: 20130909
  32. AUGMENTIN [Concomitant]
     Active Substance: AMOXICILLIN\CLAVULANATE POTASSIUM
     Indication: PRODUCT USED FOR UNKNOWN INDICATION
     Dosage: 1875 MILLIGRAM, QD
     Route: 065
     Dates: start: 20130412, end: 20130418
  33. AUGMENTIN [Concomitant]
     Active Substance: AMOXICILLIN\CLAVULANATE POTASSIUM
     Dosage: 625 MILLIGRAM, QD
     Route: 065
     Dates: start: 20130412, end: 20130418
  34. DEXAMETHASONE. [Concomitant]
     Active Substance: DEXAMETHASONE
     Dosage: 1 DOSAGE FORM, QD
     Route: 065
     Dates: start: 20130607, end: 20130820
  35. TRAMADOL. [Concomitant]
     Active Substance: TRAMADOL
     Dosage: 200 MILLIGRAM, QD
     Route: 065
     Dates: start: 20121101
  36. METRONIDAZOLE. [Concomitant]
     Active Substance: METRONIDAZOLE
     Indication: PRODUCT USED FOR UNKNOWN INDICATION
     Dosage: 400 MILLIGRAM, QD
     Route: 065
     Dates: start: 20130508, end: 20130515
  37. CLARITHROMYCIN. [Concomitant]
     Active Substance: CLARITHROMYCIN
     Indication: PRODUCT USED FOR UNKNOWN INDICATION
     Dosage: 500 MILLIGRAM, QD
     Route: 065
     Dates: start: 20130227, end: 20130305
  38. TRASTUZUMAB. [Suspect]
     Active Substance: TRASTUZUMAB
     Indication: HER2 POSITIVE BREAST CANCER
     Dosage: ,LOADING DOSE (CYCLE 1 ONLY AS PER PROTOCOL), 8 MILLIGRAM/KILOGRAM, CYCLE
     Route: 042
     Dates: start: 20121206
  39. XELODA [Suspect]
     Active Substance: CAPECITABINE
     Indication: PRODUCT USED FOR UNKNOWN INDICATION
     Dosage: 1000 MILLIGRAM, QD
     Route: 065
     Dates: start: 20130827
  40. PERTUZUMAB. [Suspect]
     Active Substance: PERTUZUMAB
     Indication: HER2 POSITIVE BREAST CANCER
     Dosage: MAINTENANCE DOSE MOST RECENT DOSE PRIOR TO SAE: 16/AUG/2013
     Route: 042
     Dates: start: 20121227
  41. PERTUZUMAB. [Suspect]
     Active Substance: PERTUZUMAB
     Dosage: 840 MILLIGRAM, CYCLE,LOADING DOSE (CYCLE 1 ONLY AS PER PROTOCOL)
     Route: 042
     Dates: start: 20121206
  42. LAPATINIB [Suspect]
     Active Substance: LAPATINIB
     Indication: PRODUCT USED FOR UNKNOWN INDICATION
     Dosage: UNK
     Route: 065
     Dates: start: 20130827
  43. FLUXETIN [Concomitant]
     Dosage: 1, UNK, QD
     Route: 065
     Dates: start: 20130402
  44. METRONIDAZOLE. [Concomitant]
     Active Substance: METRONIDAZOLE
     Dosage: 10 MILLIGRAM
     Route: 065
     Dates: start: 20130113, end: 20130114
  45. CLARITHROMYCIN. [Concomitant]
     Active Substance: CLARITHROMYCIN
     Dosage: 250 MILLIGRAM, QD
     Route: 065
     Dates: start: 20130227, end: 20130305
  46. SENNA                              /00142201/ [Concomitant]
     Active Substance: SENNA LEAF
     Indication: PRODUCT USED FOR UNKNOWN INDICATION
     Dosage: UNK
     Route: 065
     Dates: start: 20130118, end: 20130118
  47. LACTULOSE. [Concomitant]
     Active Substance: LACTULOSE
     Indication: PRODUCT USED FOR UNKNOWN INDICATION
     Dosage: UNK
     Route: 065
     Dates: start: 20130703
  48. PACLITAXEL. [Suspect]
     Active Substance: PACLITAXEL
     Dosage: MOST RECENT DOSE PRIOR TO SAE: 12/APR/2013
     Route: 065
     Dates: start: 20121221
  49. ZOMORPH [Concomitant]
     Active Substance: MORPHINE SULFATE
     Dosage: 10 MILLIGRAM, QD
     Route: 065
     Dates: start: 20130123
  50. LOPERAMIDE [Concomitant]
     Active Substance: LOPERAMIDE
     Dosage: UNK
     Route: 065
     Dates: start: 201306
  51. GANFORT [Concomitant]
     Active Substance: BIMATOPROST\TIMOLOL
     Indication: PRODUCT USED FOR UNKNOWN INDICATION
     Dosage: 1 DROP 3 ML AT NIGHT
     Route: 065
     Dates: start: 20090731
  52. PARACETAMOL [Concomitant]
     Active Substance: ACETAMINOPHEN
     Indication: PRODUCT USED FOR UNKNOWN INDICATION
     Dosage: 500 MILLIGRAM, PRN
     Route: 065
     Dates: start: 20121101
  53. BENDROFLUAZIDE [Concomitant]
     Active Substance: BENDROFLUMETHIAZIDE
     Indication: PRODUCT USED FOR UNKNOWN INDICATION
     Dosage: 2.5 MILLIGRAM, QD
     Route: 065
     Dates: start: 20130614, end: 20130625
  54. DEXAMETHASONE. [Concomitant]
     Active Substance: DEXAMETHASONE
     Dosage: 1 DOSAGE FORM
     Route: 065
     Dates: start: 20130821, end: 20131001
  55. TRAMADOL. [Concomitant]
     Active Substance: TRAMADOL
     Indication: PRODUCT USED FOR UNKNOWN INDICATION
     Dosage: 50 MILLIGRAM, QD
     Route: 065
     Dates: start: 20121101
  56. SIMVASTATIN. [Concomitant]
     Active Substance: SIMVASTATIN
     Indication: PRODUCT USED FOR UNKNOWN INDICATION
     Dosage: 40 MILLIGRAM, QD
     Route: 065
     Dates: start: 201112
  57. ZOMORPH [Concomitant]
     Active Substance: MORPHINE SULFATE
     Indication: PRODUCT USED FOR UNKNOWN INDICATION
     Dosage: 20 MILLIGRAM, QD
     Route: 065
     Dates: start: 20130724, end: 20130813
  58. FLUXETIN [Concomitant]
     Indication: PRODUCT USED FOR UNKNOWN INDICATION
     Dosage: 40 MILLIGRAM, QD
     Route: 065
     Dates: start: 201306, end: 20130730
  59. BENDROFLUAZIDE [Concomitant]
     Active Substance: BENDROFLUMETHIAZIDE
     Dosage: 2.5 MILLIGRAM, QD
     Route: 065
     Dates: start: 20130702, end: 20130710
  60. LAPATINIB [Suspect]
     Active Substance: LAPATINIB
     Dosage: 1000 MILLIGRAM, QD
     Route: 065
     Dates: start: 20130827, end: 20130923
  61. ZOMORPH [Concomitant]
     Active Substance: MORPHINE SULFATE
     Dosage: 20 MILLIGRAM, QD
     Route: 065
     Dates: start: 20130123
  62. SANDO K                            /00209301/ [Concomitant]
     Active Substance: POTASSIUM BICARBONATE\POTASSIUM CHLORIDE
     Dosage: 1 DOSAGE FORM, QD (1 TABLET)
     Route: 065
     Dates: start: 20130419, end: 20130423
  63. SANDO K                            /00209301/ [Concomitant]
     Active Substance: POTASSIUM BICARBONATE\POTASSIUM CHLORIDE
     Dosage: 4 DOSAGE FORM, QD
     Route: 065
     Dates: start: 20130911, end: 20130916
  64. METOCLOPRAMIDE. [Concomitant]
     Active Substance: METOCLOPRAMIDE
     Dosage: 20 MILLIGRAM
     Route: 065
     Dates: start: 20130110, end: 20130114
  65. FLUXETIN [Concomitant]
     Dosage: 20 MILLIGRAM, QD
     Route: 065
     Dates: start: 20130801
  66. TRIMETHOPRIM. [Concomitant]
     Active Substance: TRIMETHOPRIM
     Indication: PRODUCT USED FOR UNKNOWN INDICATION
     Dosage: UNK
     Route: 065
     Dates: start: 20130122
  67. FLUOXETINE [Concomitant]
     Active Substance: FLUOXETINE HYDROCHLORIDE
     Dosage: 20 MILLIGRAM, QD
     Route: 065
     Dates: start: 20130801
  68. FLUOXETINE [Concomitant]
     Active Substance: FLUOXETINE HYDROCHLORIDE
     Dosage: UNK
     Route: 065
     Dates: start: 201306, end: 20130730

REACTIONS (2)
  - Diarrhoea [Recovered/Resolved]
  - Dehydration [Recovered/Resolved]

NARRATIVE: CASE EVENT DATE: 20130909
